FAERS Safety Report 13319855 (Version 1)
Quarter: 2017Q1

REPORT INFORMATION
  Report Type: Report from Study
  Country: US (occurrence: US)
  Receive Date: 20170308
  Receipt Date: 20170308
  Transmission Date: 20170428
  Serious: No
  Sender: FDA-Public Use
  Company Number: US-AMGEN-USASL2016123944

PATIENT

DRUGS (1)
  1. SENSIPAR [Suspect]
     Active Substance: CINACALCET HYDROCHLORIDE
     Indication: PRODUCT USED FOR UNKNOWN INDICATION
     Dosage: 180 MG, QD (2 TABELTS BY MOUTH FOUR TIMES A WEEK ON NON-DIALYSIS DAYS)
     Route: 048

REACTIONS (3)
  - Vomiting [Unknown]
  - Nausea [Unknown]
  - Decreased appetite [Unknown]
